FAERS Safety Report 8640673 (Version 3)
Quarter: 2012Q4

REPORT INFORMATION
  Report Type: 
  Country: US (occurrence: US)
  Receive Date: 20120628
  Receipt Date: 20120828
  Transmission Date: 20130627
  Serious: Yes (Hospitalization)
  Sender: FDA-Public Use
  Company Number: US-BAYER-2012-062481

PATIENT
  Age: 20 Year
  Sex: Female
  Weight: 68.03 kg

DRUGS (11)
  1. YAZ [Suspect]
     Indication: CONTRACEPTION
     Dosage: UNK
     Dates: start: 20090731, end: 20100519
  2. OCELLA [Suspect]
     Indication: CONTRACEPTION
     Dosage: UNK
     Dates: start: 20090131, end: 20090427
  3. GIANVI [Suspect]
     Indication: CONTRACEPTION
     Dosage: UNK
     Dates: start: 20100617, end: 20110601
  4. GIANVI [Suspect]
     Indication: CONTRACEPTION
     Dosage: UNK
     Dates: start: 201011, end: 201103
  5. GIANVI [Suspect]
     Indication: CONTRACEPTION
     Dosage: UNK
     Dates: start: 201106
  6. CYCLOBENZAPRINE [Concomitant]
     Indication: MUSCLE RELAXANT THERAPY
     Dosage: 5 mg, 1 pill 1 [time] daily
     Route: 048
     Dates: start: 20110601
  7. NAPROXEN [Concomitant]
     Indication: PAIN
     Dosage: 500 mg, 1 pill 1 [time] daily
     Route: 048
     Dates: start: 20110601
  8. NITROFURANTOIN [Concomitant]
     Dosage: 100 mg, UNK
  9. ACETAMINOPHEN [Concomitant]
     Dosage: UNK
     Dates: start: 20110327
  10. MACROBID [Concomitant]
     Dosage: UNK
     Dates: start: 20110327
  11. BACTRIM [Concomitant]
     Indication: URINARY TRACT INFECTION

REACTIONS (3)
  - Pulmonary embolism [None]
  - Injury [None]
  - Back pain [None]
